FAERS Safety Report 7552461-7 (Version None)
Quarter: 2011Q2

REPORT INFORMATION
  Report Type: 
  Country: None (occurrence: None)
  Receive Date: 20110616
  Receipt Date: 20110613
  Transmission Date: 20111010
  Serious: Yes (Hospitalization, Disabling, Other)
  Sender: FDA-Public Use
  Company Number: IE-ABBOTT-10P-229-0637869-00

PATIENT
  Sex: Male

DRUGS (2)
  1. ARTHROTEC [Concomitant]
     Indication: ANKYLOSING SPONDYLITIS
     Route: 048
  2. HUMIRA [Suspect]
     Indication: ANKYLOSING SPONDYLITIS
     Route: 058
     Dates: start: 20030101, end: 20100401

REACTIONS (2)
  - RETROPERITONEAL FIBROSIS [None]
  - PLEURAL EFFUSION [None]
